FAERS Safety Report 6760492-X (Version None)
Quarter: 2010Q2

REPORT INFORMATION
  Report Type: 
  Country: None (occurrence: None)
  Receive Date: 20100602
  Receipt Date: 20100406
  Transmission Date: 20101027
  Serious: Yes (Other)
  Sender: FDA-Public Use
  Company Number: 230551USA

PATIENT
  Age: 59 Year
  Sex: Male

DRUGS (6)
  1. OXALIPLATIN [Suspect]
     Indication: COLON CANCER
     Dosage: (195 MG),INTRAVENOUS
     Route: 042
  2. OXALIPLATIN [Suspect]
  3. FOLINIC ACID [Concomitant]
  4. FLUOROURACIL [Concomitant]
  5. DEXAMETHASONE ACETATE [Concomitant]
  6. PALONOSETRON HYDROCHLORIDE [Concomitant]

REACTIONS (3)
  - ERYTHEMA [None]
  - PARAESTHESIA [None]
  - PRURITUS [None]
